FAERS Safety Report 22164487 (Version 1)
Quarter: 2023Q2

REPORT INFORMATION
  Report Type: Spontaneous
  Country: None (occurrence: US)
  Receive Date: 20230403
  Receipt Date: 20230403
  Transmission Date: 20230722
  Serious: No
  Sender: FDA-Public Use
  Company Number: US-Appco Pharma LLC-2139816

PATIENT
  Age: 81 Year
  Sex: Female

DRUGS (3)
  1. HYDROXYCHLOROQUINE SULFATE [Suspect]
     Active Substance: HYDROXYCHLOROQUINE SULFATE
     Indication: Rheumatoid arthritis
     Route: 065
     Dates: start: 20230220, end: 20230310
  2. TYLENOL [Concomitant]
     Active Substance: ACETAMINOPHEN
     Route: 065
  3. LOTRIMIN [Concomitant]
     Active Substance: CLOTRIMAZOLE
     Route: 065

REACTIONS (2)
  - Rash [Not Recovered/Not Resolved]
  - Chills [Unknown]
